FAERS Safety Report 24113345 (Version 1)
Quarter: 2024Q3

REPORT INFORMATION
  Report Type: Other
  Country: US (occurrence: US)
  Receive Date: 20240719
  Receipt Date: 20240719
  Transmission Date: 20241017
  Serious: No
  Sender: ASCENT
  Company Number: US-ASCENT-2024ASREG00004

PATIENT

DRUGS (1)
  1. POTASSIUM CITRATE [Suspect]
     Active Substance: POTASSIUM CITRATE
     Indication: Product used for unknown indication
     Route: 065

REACTIONS (3)
  - Product solubility abnormal [Unknown]
  - Product formulation issue [Unknown]
  - Product residue present [Unknown]
